FAERS Safety Report 5511889-7 (Version None)
Quarter: 2007Q4

REPORT INFORMATION
  Report Type: 
  Country: None (occurrence: None)
  Receive Date: 20071109
  Receipt Date: 20071029
  Transmission Date: 20080405
  Serious: Yes (Other)
  Sender: FDA-Public Use
  Company Number: US-PFIZER INC-2007091250

PATIENT
  Sex: Female
  Weight: 65.909 kg

DRUGS (4)
  1. PHENYTOIN SODIUM [Suspect]
     Indication: GRAND MAL CONVULSION
     Route: 048
  2. PHENOBARBITAL TAB [Suspect]
     Indication: CONVULSION
  3. MEPHOBARBITAL [Suspect]
     Indication: CONVULSION
  4. VALIUM [Suspect]
     Indication: CONVULSION

REACTIONS (6)
  - BACK INJURY [None]
  - CONVULSION [None]
  - DRUG LEVEL DECREASED [None]
  - FATIGUE [None]
  - INTERVERTEBRAL DISC PROTRUSION [None]
  - STRESS [None]
